FAERS Safety Report 12914783 (Version 2)
Quarter: 2017Q1

REPORT INFORMATION
  Report Type: Spontaneous
  Country: US (occurrence: US)
  Receive Date: 20161106
  Receipt Date: 20170216
  Transmission Date: 20170428
  Serious: No
  Sender: FDA-Public Use
  Company Number: US-RELYPSA-RLY2016002026

PATIENT
  Sex: Male

DRUGS (12)
  1. VELTASSA [Suspect]
     Active Substance: PATIROMER
     Indication: BLOOD POTASSIUM INCREASED
     Dosage: 8.4 G, QD
     Route: 048
     Dates: start: 20160728
  2. COREG [Concomitant]
     Active Substance: CARVEDILOL
     Dosage: 80 MG, QD
  3. LOSARTAN POTASSIUM. [Concomitant]
     Active Substance: LOSARTAN POTASSIUM
     Dosage: 25 MG, QD
  4. CENTRUM [Concomitant]
     Active Substance: VITAMINS
  5. FUROSEMIDE. [Concomitant]
     Active Substance: FUROSEMIDE
     Dosage: 30 MG, 1 TABLET QAM AND 1/2 TABLET QHS
  6. BAYER ASPIRIN [Concomitant]
     Active Substance: ASPIRIN
     Dosage: 81 MG, UNK
  7. GLIMEPIRIDE. [Concomitant]
     Active Substance: GLIMEPIRIDE
     Indication: DIABETES MELLITUS
     Dosage: 4 MG, QD
  8. ALLOPURINOL. [Concomitant]
     Active Substance: ALLOPURINOL
     Indication: ASTHMA
     Dosage: 100 MG, QD
  9. ADVAIR HFA [Concomitant]
     Active Substance: FLUTICASONE PROPIONATE\SALMETEROL XINAFOATE
     Indication: ASTHMA
     Dosage: 250/50 QD
  10. VITAMIN B3 [Concomitant]
     Active Substance: NIACIN
  11. PROAIR HFA [Concomitant]
     Active Substance: ALBUTEROL SULFATE
  12. SODIUM BICARBONATE. [Concomitant]
     Active Substance: SODIUM BICARBONATE
     Dosage: 750 MG, 2 TABLETS TWICE DAILY

REACTIONS (2)
  - Diarrhoea [Unknown]
  - Constipation [Not Recovered/Not Resolved]

NARRATIVE: CASE EVENT DATE: 2016
